FAERS Safety Report 6057738-2 (Version None)
Quarter: 2009Q1

REPORT INFORMATION
  Report Type: 
  Country: None (occurrence: None)
  Receive Date: 20090129
  Receipt Date: 20090122
  Transmission Date: 20090719
  Serious: Yes (Other)
  Sender: FDA-Public Use
  Company Number: US-PFIZER INC-2008153281

PATIENT
  Sex: Female
  Weight: 63.492 kg

DRUGS (2)
  1. LIPITOR [Suspect]
     Indication: BLOOD CHOLESTEROL INCREASED
  2. SIMVASTATIN [Suspect]

REACTIONS (3)
  - ANEURYSM [None]
  - HYPERTENSION [None]
  - URINARY INCONTINENCE [None]
